FAERS Safety Report 10709608 (Version 3)
Quarter: 2015Q1

REPORT INFORMATION
  Report Type: Spontaneous
  Country: US (occurrence: US)
  Receive Date: 20150114
  Receipt Date: 20150325
  Transmission Date: 20150721
  Serious: Yes (Other)
  Sender: FDA-Public Use
  Company Number: US-BAYER-2015-005215

PATIENT
  Age: 23 Year
  Sex: Female
  Weight: 52.61 kg

DRUGS (1)
  1. SKYLA [Suspect]
     Active Substance: LEVONORGESTREL
     Indication: CONTRACEPTION
     Dosage: 14 MCG/24HR, CONT
     Route: 015
     Dates: start: 20150102, end: 20150113

REACTIONS (6)
  - Genital haemorrhage [Recovered/Resolved]
  - Abdominal pain lower [None]
  - Vaginal haemorrhage [None]
  - Pain [Recovered/Resolved]
  - Vaginal discharge [None]
  - Device expulsion [Recovered/Resolved]

NARRATIVE: CASE EVENT DATE: 201501
